FAERS Safety Report 8913970 (Version 1)
Quarter: 2012Q4

REPORT INFORMATION
  Report Type: 
  Country: JP (occurrence: JP)
  Receive Date: 20121116
  Receipt Date: 20121116
  Transmission Date: 20130627
  Serious: Yes (Other)
  Sender: FDA-Public Use
  Company Number: JP-MERCK-1211JPN006416

PATIENT
  Sex: Female

DRUGS (4)
  1. BONALON [Suspect]
     Indication: OSTEOPOROSIS
     Dosage: 35 mg, UNK
     Route: 048
     Dates: start: 20070901, end: 200902
  2. ACTONEL [Suspect]
     Indication: OSTEOPOROSIS
     Dosage: UNK
     Route: 048
     Dates: start: 20050113, end: 20070330
  3. ACTONEL [Suspect]
     Dosage: UNK
     Route: 048
     Dates: start: 2007, end: 200708
  4. PREDONINE [Concomitant]
     Indication: SYSTEMIC LUPUS ERYTHEMATOSUS
     Dosage: UNK
     Route: 048
     Dates: start: 1975

REACTIONS (1)
  - Osteomyelitis [Recovering/Resolving]
